FAERS Safety Report 8438446-7 (Version None)
Quarter: 2012Q2

REPORT INFORMATION
  Report Type: 
  Country: None (occurrence: None)
  Receive Date: 20120614
  Receipt Date: 20120612
  Transmission Date: 20120825
  Serious: Yes (Hospitalization, Other)
  Sender: FDA-Public Use
  Company Number: DE-AMGEN-DEUSP2012013752

PATIENT
  Age: 82 Year
  Sex: Female

DRUGS (4)
  1. ALENDRONATE SODIUM [Concomitant]
     Dosage: UNK UNK, QWK
  2. PROLIA [Suspect]
     Indication: OSTEOPOROSIS
     Dosage: 60 MG, Q3MO
     Route: 058
     Dates: start: 20110208, end: 20120214
  3. ASPIRIN [Concomitant]
  4. ATACAND HCT [Concomitant]

REACTIONS (2)
  - TOOTH LOSS [None]
  - OSTEONECROSIS OF JAW [None]
